FAERS Safety Report 8420913-3 (Version None)
Quarter: 2012Q2

REPORT INFORMATION
  Report Type: 
  Country: None (occurrence: None)
  Receive Date: 20120531
  Receipt Date: 20120519
  Transmission Date: 20120825
  Serious: Yes (Death, Hospitalization)
  Sender: FDA-Public Use
  Company Number: 2012AP001536

PATIENT
  Age: 60 Year
  Sex: Male

DRUGS (2)
  1. NOVOSEVEN [Suspect]
     Indication: PRODUCT USED FOR UNKNOWN INDICATION
     Dosage: 90 UG/KG
  2. CLOPIDEGREL [Suspect]
     Indication: ARTERIAL STENOSIS

REACTIONS (6)
  - MULTI-ORGAN FAILURE [None]
  - POSTOPERATIVE THROMBOSIS [None]
  - DISSEMINATED INTRAVASCULAR COAGULATION [None]
  - LEFT VENTRICULAR DYSFUNCTION [None]
  - AORTIC THROMBOSIS [None]
  - HAEMORRHAGE [None]
